FAERS Safety Report 8324783-3 (Version None)
Quarter: 2012Q2

REPORT INFORMATION
  Report Type: 
  Country: None (occurrence: None)
  Receive Date: 20120501
  Receipt Date: 20120424
  Transmission Date: 20120825
  Serious: Yes (Disabling)
  Sender: FDA-Public Use
  Company Number: PHHO2012FR006497

PATIENT
  Sex: Female
  Weight: 10 kg

DRUGS (4)
  1. STEROIDS NOS [Concomitant]
     Dosage: UNK
  2. IMATINIB MESYLATE [Suspect]
     Indication: ACUTE LYMPHOCYTIC LEUKAEMIA
     Dosage: 150 MG, PER DAY (INDUCTION TO HR3)
     Route: 048
     Dates: start: 20110610, end: 20111130
  3. CYCLOSPORINE [Concomitant]
     Dosage: UNK
  4. STEROIDS NOS [Concomitant]
     Dosage: 12 MG, / DAY
     Dates: start: 20120316

REACTIONS (1)
  - SPINAL COMPRESSION FRACTURE [None]
